FAERS Safety Report 5449237-3 (Version None)
Quarter: 2007Q3

REPORT INFORMATION
  Report Type: 
  Country: None (occurrence: None)
  Receive Date: 20070911
  Receipt Date: 20070830
  Transmission Date: 20080115
  Serious: Yes (Hospitalization)
  Sender: FDA-Public Use
  Company Number: US-SHR-US-2007-003677

PATIENT
  Age: 78 Year
  Sex: Female
  Weight: 52.608 kg

DRUGS (23)
  1. BETASERON [Suspect]
     Dosage: 8 MIU, EVERY 2D
     Route: 058
     Dates: start: 20050503
  2. BETASERON [Suspect]
     Dosage: 9.6 MIU, EVERY 3D
     Route: 058
  3. FOSAMAX [Concomitant]
     Indication: OSTEOPOROSIS
     Dosage: 70 MG, 1X/WEEK
     Route: 048
     Dates: start: 20000101
  4. PROTONIX [Concomitant]
     Dosage: 40 MG, 1X/DAY
     Route: 048
  5. ALL OTHER NON-THERAPEUTIC PRODUCTS [Concomitant]
     Dosage: 20 MG, 2X/DAY
     Route: 048
     Dates: start: 20070101
  6. AVAPRO [Concomitant]
     Indication: BLOOD PRESSURE ABNORMAL
     Dosage: 150 MG, 1X/DAY
     Route: 048
  7. CALCIUM [Concomitant]
  8. ASPIRIN [Concomitant]
  9. VITAMINS [Concomitant]
  10. NIFEDIPINE [Concomitant]
     Indication: BLOOD PRESSURE ABNORMAL
     Dosage: 30 MG, UNK
  11. PRAVACHOL [Concomitant]
     Dosage: 20 MG, UNK
     Route: 048
  12. IRON [Concomitant]
  13. SANCTURA [Concomitant]
     Route: 048
  14. LANTUS [Concomitant]
     Route: 050
  15. HUMALOG [Concomitant]
     Route: 050
  16. PERCOCET [Concomitant]
     Indication: PAIN
  17. COUMADIN [Concomitant]
  18. PROTONIX [Concomitant]
  19. ZOCOR [Concomitant]
  20. METOPROLOL SUCCINATE [Concomitant]
  21. KLONOPIN [Concomitant]
  22. XALATAN [Concomitant]
  23. ENABLEX (DARIFENACIN) [Concomitant]

REACTIONS (5)
  - BALANCE DISORDER [None]
  - BLOOD GLUCOSE ABNORMAL [None]
  - FALL [None]
  - HIP FRACTURE [None]
  - UNEVALUABLE EVENT [None]
